FAERS Safety Report 15801568 (Version 4)
Quarter: 2019Q1

REPORT INFORMATION
  Report Type: Report from Study
  Country: JP (occurrence: JP)
  Receive Date: 20190109
  Receipt Date: 20190305
  Transmission Date: 20190417
  Serious: Yes (Death, Life-Threatening, Hospitalization, Other)
  Sender: FDA-Public Use
  Company Number: JP-ASTELLAS-2019JP000002

PATIENT
  Age: 81 Year
  Sex: Female
  Weight: 40 kg

DRUGS (59)
  1. XYLOCAINE [Concomitant]
     Active Substance: LIDOCAINE HYDROCHLORIDE
     Indication: STOMATITIS
     Dosage: OPTIMUM DOSE, AS NEEDED
     Route: 061
     Dates: start: 20180816, end: 20180823
  2. TALION                             /01393102/ [Concomitant]
     Indication: RASH
     Dosage: UNK UNK, UNKNOWN FREQ.
     Route: 048
     Dates: start: 20180817, end: 20181130
  3. ASP2215 [Suspect]
     Active Substance: GILTERITINIB
     Route: 048
     Dates: start: 20180823, end: 20181221
  4. SODIUM RABEPRAZOLE [Concomitant]
     Active Substance: RABEPRAZOLE SODIUM
     Indication: GASTRIC ULCER
     Dosage: UNK UNK, UNKNOWN FREQ.
     Route: 048
     Dates: start: 20171120, end: 20180725
  5. TRAMCET [Concomitant]
     Active Substance: ACETAMINOPHEN\TRAMADOL
     Indication: SPINAL COMPRESSION FRACTURE
     Route: 048
     Dates: start: 20180913, end: 20181231
  6. REBAMIPIDE [Concomitant]
     Active Substance: REBAMIPIDE
     Indication: GASTRITIS PROPHYLAXIS
     Route: 048
     Dates: start: 20180604, end: 20181231
  7. POWDERED ARECA [Concomitant]
     Route: 048
     Dates: start: 20180930, end: 20181231
  8. OLOPATADINE. [Concomitant]
     Active Substance: OLOPATADINE
     Dosage: UNK UNK, UNKNOWN FREQ.
     Route: 048
     Dates: start: 20180822
  9. CEFEPIME HYDROCHLORIDE. [Concomitant]
     Active Substance: CEFEPIME HYDROCHLORIDE
     Indication: FEBRILE NEUTROPENIA
     Dosage: UNK UNK, UNKNOWN FREQ.
     Route: 042
     Dates: start: 20180830, end: 20180910
  10. SOSEGON                            /00052101/ [Concomitant]
     Active Substance: PENTAZOCINE
     Indication: ANALGESIC THERAPY
     Route: 042
     Dates: start: 20190122
  11. HYDREA [Suspect]
     Active Substance: HYDROXYUREA
     Route: 048
     Dates: start: 20190103, end: 20190108
  12. LEVOFLOXACIN. [Concomitant]
     Active Substance: LEVOFLOXACIN
     Route: 048
     Dates: start: 20180911, end: 20181231
  13. SENNOSIDE                          /00571901/ [Concomitant]
     Active Substance: SENNOSIDES A AND B
     Indication: CONSTIPATION PROPHYLAXIS
     Dosage: UNK UNK, UNKNOWN FREQ.
     Route: 048
     Dates: start: 20180716, end: 20180719
  14. LOXONIN [Concomitant]
     Active Substance: LOXOPROFEN SODIUM
     Indication: SPONDYLOLISTHESIS
     Dosage: UNK UNK, UNKNOWN FREQ.
     Route: 062
     Dates: start: 20180731, end: 20181231
  15. LOXONIN [Concomitant]
     Active Substance: LOXOPROFEN SODIUM
     Indication: SPINAL COMPRESSION FRACTURE
  16. PROPETO [Concomitant]
     Indication: RASH
     Dosage: OPTIMUM DOSE, UNKNOWN FREQ.
     Route: 065
     Dates: start: 20180806, end: 20181231
  17. OLOPATADINE. [Concomitant]
     Active Substance: OLOPATADINE
     Dosage: UNK UNK, UNKNOWN FREQ.
     Route: 048
     Dates: start: 20181201, end: 20181231
  18. PAREPLUS [Concomitant]
     Active Substance: AMINO ACIDS\DEXTROSE\ELECTROLYTES NOS\VITAMINS
     Dosage: UNK UNK, UNKNOWN FREQ.
     Route: 042
     Dates: start: 20180818, end: 20180824
  19. CEFEPIME HYDROCHLORIDE. [Concomitant]
     Active Substance: CEFEPIME HYDROCHLORIDE
     Indication: URINARY TRACT INFECTION
     Dosage: UNK UNK, UNKNOWN FREQ.
     Route: 042
     Dates: start: 20180810, end: 20180821
  20. CANDESARTAN. [Concomitant]
     Active Substance: CANDESARTAN
     Indication: HYPERTENSION
     Dosage: UNK UNK, UNKNOWN FREQ.
     Route: 048
     Dates: start: 201606, end: 20180720
  21. LYRICA [Concomitant]
     Active Substance: PREGABALIN
     Indication: SPINAL COMPRESSION FRACTURE
     Route: 048
     Dates: start: 20180604, end: 20181231
  22. LEVOFLOXACIN. [Concomitant]
     Active Substance: LEVOFLOXACIN
     Indication: INFECTION PROPHYLAXIS
     Dosage: UNK UNK, UNKNOWN FREQ.
     Route: 048
     Dates: start: 20180715, end: 20180810
  23. POLARAMINE [Concomitant]
     Active Substance: DEXCHLORPHENIRAMINE MALEATE
     Indication: TRANSFUSION REACTION
     Dosage: UNK UNK, UNKNOWN FREQ.
     Route: 042
     Dates: start: 20180717, end: 20180717
  24. KINDAVATE [Concomitant]
     Active Substance: CLOBETASONE BUTYRATE
     Indication: RASH
     Dosage: OPTIMUM DOSE, TWICE DAILY
     Route: 065
     Dates: start: 20180806, end: 20181231
  25. OLOPATADINE HYDROCHLORIDE. [Concomitant]
     Active Substance: OLOPATADINE HYDROCHLORIDE
     Indication: PRURITUS
     Route: 048
     Dates: start: 20181201, end: 20181231
  26. NAFAMOSTAT [Concomitant]
     Active Substance: NAFAMOSTAT
     Indication: DISSEMINATED INTRAVASCULAR COAGULATION
     Dosage: UNK UNK, UNKNOWN FREQ.
     Route: 042
     Dates: start: 20190101, end: 20190120
  27. METOCLOPRAMIDE. [Concomitant]
     Active Substance: METOCLOPRAMIDE
     Indication: NAUSEA
     Route: 048
     Dates: start: 20180727, end: 20181231
  28. PARIET [Concomitant]
     Active Substance: RABEPRAZOLE SODIUM
     Indication: GASTRITIS PROPHYLAXIS
     Route: 048
     Dates: start: 20180804, end: 20181231
  29. PAREPLUS [Concomitant]
     Active Substance: AMINO ACIDS\DEXTROSE\ELECTROLYTES NOS\VITAMINS
     Indication: PROPHYLAXIS
     Dosage: UNK UNK, UNKNOWN FREQ.
     Route: 042
     Dates: start: 20180808, end: 20180808
  30. VANCOMYCIN HYDROCHLORIDE. [Concomitant]
     Active Substance: VANCOMYCIN HYDROCHLORIDE
     Indication: FEBRILE NEUTROPENIA
     Dosage: UNK UNK, UNKNOWN FREQ.
     Route: 042
     Dates: start: 20180830, end: 20180910
  31. MEROPENEM. [Concomitant]
     Active Substance: MEROPENEM
     Indication: CHOLANGITIS ACUTE
     Dosage: 0.5 G, TWICE DAILY
     Route: 042
     Dates: start: 20190101, end: 20190128
  32. HYDREA [Suspect]
     Active Substance: HYDROXYUREA
     Route: 048
     Dates: start: 20190109, end: 20190115
  33. TRIMEBUTINE MALEATE [Concomitant]
     Active Substance: TRIMEBUTINE MALEATE
     Indication: GASTRITIS PROPHYLAXIS
     Route: 048
     Dates: start: 2016, end: 20181231
  34. SOLACET F [Concomitant]
     Indication: PROPHYLAXIS
     Dosage: UNK UNK, UNKNOWN FREQ.
     Route: 042
     Dates: start: 20180712, end: 20180717
  35. OLOPATADINE. [Concomitant]
     Active Substance: OLOPATADINE
     Indication: PRURITUS
     Dosage: UNK, UNKNOWN FREQ.
     Route: 048
     Dates: start: 20180808, end: 20180810
  36. XYLOCAINE [Concomitant]
     Active Substance: LIDOCAINE HYDROCHLORIDE
     Dosage: OPTIMUM DOSE, AS NEEDED
     Route: 061
     Dates: start: 20181109, end: 20181231
  37. ASP2215 [Suspect]
     Active Substance: GILTERITINIB
     Indication: ACUTE MYELOID LEUKAEMIA
     Route: 048
     Dates: start: 20180711, end: 20180809
  38. HYDREA [Suspect]
     Active Substance: HYDROXYUREA
     Indication: ACUTE MYELOID LEUKAEMIA
     Route: 048
     Dates: start: 20181228, end: 20181231
  39. CANDESARTAN. [Concomitant]
     Active Substance: CANDESARTAN
     Route: 048
     Dates: start: 20181026, end: 20181231
  40. TRAMCET [Concomitant]
     Active Substance: ACETAMINOPHEN\TRAMADOL
     Indication: SPINAL COMPRESSION FRACTURE
     Dosage: UNK UNK, UNKNOWN FREQ.
     Route: 048
     Dates: start: 20180604
  41. FLUCONAZOLE. [Concomitant]
     Active Substance: FLUCONAZOLE
     Route: 048
     Dates: start: 20180911, end: 20181231
  42. HACHIAZULE                         /00317302/ [Concomitant]
     Indication: INFECTION PROPHYLAXIS
     Dosage: 1 DF, APPROPRIATELY
     Route: 065
     Dates: start: 20180727, end: 20181231
  43. LOXONIN [Concomitant]
     Active Substance: LOXOPROFEN SODIUM
     Indication: SPINAL COMPRESSION FRACTURE
  44. PAREPLUS [Concomitant]
     Active Substance: AMINO ACIDS\DEXTROSE\ELECTROLYTES NOS\VITAMINS
     Dosage: UNK UNK, UNKNOWN FREQ.
     Route: 042
     Dates: start: 20180830, end: 20180907
  45. ORTEXER [Concomitant]
     Indication: STOMATITIS
     Dosage: OPTIMUM DOSE, AS NEEDED
     Route: 065
     Dates: start: 20181116, end: 20181231
  46. TRIAMCINOLONE ACETONIDE. [Concomitant]
     Active Substance: TRIAMCINOLONE ACETONIDE
     Indication: STOMATITIS
     Dosage: UNK UNK, UNKNOWN FREQ.
     Route: 061
     Dates: start: 20181116
  47. LOXOPROFEN NA [Concomitant]
     Active Substance: LOXOPROFEN SODIUM
     Indication: CONTUSION
     Route: 061
     Dates: start: 20181128
  48. NORADRENALINE                      /00127501/ [Concomitant]
     Active Substance: NOREPINEPHRINE
     Indication: SEPTIC SHOCK
     Dosage: UNK UNK, UNKNOWN FREQ.
     Route: 042
     Dates: start: 20181231, end: 20181231
  49. HYDREA [Suspect]
     Active Substance: HYDROXYUREA
     Route: 048
     Dates: start: 20190116, end: 20190121
  50. ELIQUIS [Concomitant]
     Active Substance: APIXABAN
     Indication: THROMBOSIS PROPHYLAXIS
     Dosage: UNK UNK, UNKNOWN FREQ.
     Route: 048
     Dates: start: 20171220, end: 20180712
  51. SLOW-K [Concomitant]
     Active Substance: POTASSIUM CHLORIDE
     Indication: PROPHYLAXIS
     Dosage: UNK UNK, UNKNOWN FREQ.
     Route: 048
     Dates: start: 20180507, end: 20180827
  52. LYRICA [Concomitant]
     Active Substance: PREGABALIN
     Indication: SPINAL COMPRESSION FRACTURE
  53. FEBURIC [Concomitant]
     Active Substance: FEBUXOSTAT
     Indication: PROPHYLAXIS
     Dosage: UNK UNK, UNKNOWN FREQ.
     Route: 048
     Dates: start: 20180712, end: 20180718
  54. FLUCONAZOLE. [Concomitant]
     Active Substance: FLUCONAZOLE
     Indication: INFECTION PROPHYLAXIS
     Dosage: UNK UNK, UNKNOWN FREQ.
     Route: 048
     Dates: start: 20180715, end: 20180810
  55. POWDERED ARECA [Concomitant]
     Indication: CONSTIPATION PROPHYLAXIS
     Dosage: UNK UNK, UNKNOWN FREQ.
     Route: 048
     Dates: start: 20180716
  56. OLOPATADINE. [Concomitant]
     Active Substance: OLOPATADINE
     Dosage: UNK, UNKNOWN FREQ.
     Route: 048
     Dates: start: 20180816, end: 20180819
  57. ANTEBATE [Concomitant]
     Active Substance: BETAMETHASONE DIPROPIONATE
     Indication: PRURITUS
     Dosage: OPTIMUM DOSE, TWICE DAILY
     Route: 061
     Dates: start: 20180817
  58. ANTEBATE [Concomitant]
     Active Substance: BETAMETHASONE DIPROPIONATE
     Dosage: OPTIMUM DOSE, TWICE DAILY
     Route: 061
     Dates: start: 20181116, end: 20181231
  59. HIRUDOID                           /00723701/ [Concomitant]
     Active Substance: PENTOSAN POLYSULFATE SODIUM
     Indication: DRY SKIN PROPHYLAXIS
     Dosage: OPTIMUM DOSE, TWICE DAILY
     Route: 061
     Dates: start: 20180904, end: 20181231

REACTIONS (4)
  - Septic shock [Recovered/Resolved]
  - Hepatic function abnormal [Not Recovered/Not Resolved]
  - Cholangitis acute [Recovering/Resolving]
  - Acute myeloid leukaemia [Fatal]

NARRATIVE: CASE EVENT DATE: 20181130
